FAERS Safety Report 20490432 (Version 1)
Quarter: 2022Q1

REPORT INFORMATION
  Report Type: Spontaneous
  Country: US (occurrence: None)
  Receive Date: 20220217
  Receipt Date: 20220217
  Transmission Date: 20220424
  Serious: No
  Sender: FDA-Public Use
  Company Number: None

PATIENT
  Age: 32 Year
  Sex: Female
  Weight: 65.77 kg

DRUGS (1)
  1. ADDERALL XR [Suspect]
     Active Substance: AMPHETAMINE ASPARTATE\AMPHETAMINE SULFATE\DEXTROAMPHETAMINE SACCHARATE\DEXTROAMPHETAMINE SULFATE
     Dosage: FREQUENCY : DAILY;?
     Route: 048
     Dates: start: 20220110, end: 20220210

REACTIONS (5)
  - Drug ineffective [None]
  - Product substitution issue [None]
  - Insurance issue [None]
  - Product quality issue [None]
  - Product complaint [None]

NARRATIVE: CASE EVENT DATE: 20220110
